FAERS Safety Report 4431278-6 (Version None)
Quarter: 2004Q3

REPORT INFORMATION
  Report Type: 
  Country: None (occurrence: None)
  Receive Date: 20040818
  Receipt Date: 20040802
  Transmission Date: 20050211
  Serious: Yes (Other)
  Sender: FDA-Public Use
  Company Number: B0299104A

PATIENT
  Age: 25 Year
  Sex: Female

DRUGS (1)
  1. ZYBAN [Suspect]

REACTIONS (1)
  - MYOCLONIC EPILEPSY [None]
